FAERS Safety Report 6567668-5 (Version None)
Quarter: 2010Q1

REPORT INFORMATION
  Report Type: 
  Country: None (occurrence: None)
  Receive Date: 20100203
  Receipt Date: 20100127
  Transmission Date: 20100710
  Serious: Yes (Hospitalization)
  Sender: FDA-Public Use
  Company Number: US-BIOGENIDEC-2010BI002234

PATIENT
  Age: 55 Year
  Sex: Female

DRUGS (3)
  1. TYSABRI [Suspect]
     Indication: MULTIPLE SCLEROSIS
     Route: 042
     Dates: start: 20090624
  2. ZYPREXA [Concomitant]
     Indication: BIPOLAR DISORDER
  3. TRILEPTAL [Concomitant]
     Indication: BIPOLAR DISORDER

REACTIONS (1)
  - BIPOLAR DISORDER [None]
